FAERS Safety Report 9235609 (Version 1)
Quarter: 2013Q2

REPORT INFORMATION
  Report Type: Spontaneous
  Country: US (occurrence: None)
  Receive Date: 20130416
  Receipt Date: 20130416
  Transmission Date: 20140414
  Serious: Yes (Hospitalization)
  Sender: FDA-Public Use
  Company Number: None

PATIENT
  Age: 71 Year
  Sex: Male
  Weight: 92.1 kg

DRUGS (10)
  1. CYCLOPHOSPHAMIDE [Suspect]
  2. PENTOSTATIN [Suspect]
  3. RITUXIMAB [Suspect]
  4. ALLOPURINOL [Concomitant]
  5. CARVEDILOL [Concomitant]
  6. NEULASTA [Concomitant]
  7. OMEPRAZOLE [Concomitant]
  8. SIMVASTATIN [Concomitant]
  9. SPIRONOLACTONE [Concomitant]
  10. TORSEMIDE [Concomitant]

REACTIONS (4)
  - Cough [None]
  - Pyrexia [None]
  - Dyspnoea paroxysmal nocturnal [None]
  - Cardiac failure congestive [None]
